FAERS Safety Report 19271628 (Version 2)
Quarter: 2021Q2

REPORT INFORMATION
  Report Type: Spontaneous
  Country: US (occurrence: US)
  Receive Date: 20210518
  Receipt Date: 20210521
  Transmission Date: 20210717
  Serious: No
  Sender: FDA-Public Use
  Company Number: US-FRESENIUS KABI-FK202104927

PATIENT
  Age: 74 Year
  Sex: Female
  Weight: 122 kg

DRUGS (1)
  1. XYLOCAINE?MPF [Suspect]
     Active Substance: LIDOCAINE HYDROCHLORIDE
     Indication: PERIOPERATIVE ANALGESIA
     Dosage: 1.5?2 MILLILITERS (ML) INJECTED INTRACAMERALLY
     Route: 031
     Dates: start: 20210506, end: 20210506

REACTIONS (1)
  - Corneal opacity [Recovered/Resolved]

NARRATIVE: CASE EVENT DATE: 20210506
